FAERS Safety Report 12795557 (Version 1)
Quarter: 2016Q3

REPORT INFORMATION
  Report Type: Spontaneous
  Country: US (occurrence: US)
  Receive Date: 20160929
  Receipt Date: 20160929
  Transmission Date: 20161109
  Serious: Yes (Death, Hospitalization)
  Sender: FDA-Public Use
  Company Number: US-ASTRAZENECA-2016SF02080

PATIENT
  Sex: Female

DRUGS (3)
  1. AGROSTAT [Concomitant]
     Indication: MYOCARDIAL INFARCTION
  2. ASPIRIN. [Concomitant]
     Active Substance: ASPIRIN
     Indication: MYOCARDIAL INFARCTION
  3. BRILINTA [Suspect]
     Active Substance: TICAGRELOR
     Indication: ACUTE MYOCARDIAL INFARCTION
     Route: 048
     Dates: start: 20160912, end: 20160918

REACTIONS (5)
  - Upper gastrointestinal haemorrhage [Not Recovered/Not Resolved]
  - Oesophageal ulcer [Unknown]
  - Haemoptysis [Unknown]
  - Gastric ulcer [Unknown]
  - Death [Fatal]

NARRATIVE: CASE EVENT DATE: 20160918
